FAERS Safety Report 19698986 (Version 2)
Quarter: 2021Q4

REPORT INFORMATION
  Report Type: Report from Study
  Country: US (occurrence: US)
  Receive Date: 20210813
  Receipt Date: 20211029
  Transmission Date: 20220303
  Serious: Yes (Other)
  Sender: FDA-Public Use
  Company Number: US-MERCK HEALTHCARE KGAA-9257481

PATIENT
  Sex: Female

DRUGS (1)
  1. REBIF [Suspect]
     Active Substance: INTERFERON BETA-1A
     Indication: Multiple sclerosis
     Route: 058
     Dates: start: 20121129

REACTIONS (4)
  - Colitis microscopic [Unknown]
  - Gastrooesophageal reflux disease [Not Recovered/Not Resolved]
  - Lung disorder [Unknown]
  - Haemangioma of liver [Unknown]
